FAERS Safety Report 6887001-9 (Version None)
Quarter: 2010Q3

REPORT INFORMATION
  Report Type: 
  Country: None (occurrence: None)
  Receive Date: 20100730
  Receipt Date: 20100721
  Transmission Date: 20110219
  Serious: Yes (Hospitalization)
  Sender: FDA-Public Use
  Company Number: ES-EISAI INC.-E7867-00134-SPO-ES

PATIENT
  Age: 58 Year
  Sex: Male

DRUGS (1)
  1. GLIADEL [Suspect]
     Route: 018
     Dates: start: 20100715

REACTIONS (4)
  - AGGRESSION [None]
  - AGITATION [None]
  - OEDEMA [None]
  - PARESIS [None]
